FAERS Safety Report 22029602 (Version 2)
Quarter: 2023Q2

REPORT INFORMATION
  Report Type: Report from Study
  Country: US (occurrence: US)
  Receive Date: 20230223
  Receipt Date: 20230412
  Transmission Date: 20230721
  Serious: Yes (Other)
  Sender: FDA-Public Use
  Company Number: US-BIOGEN-2022BI01099660

PATIENT
  Sex: Female

DRUGS (3)
  1. VUMERITY [Suspect]
     Active Substance: DIROXIMEL FUMARATE
     Indication: Multiple sclerosis
     Dosage: 1 CAPSULE TWICE DAILY FOR 7 DAYS PRIOR
     Route: 050
     Dates: start: 20220217
  2. VUMERITY [Suspect]
     Active Substance: DIROXIMEL FUMARATE
     Route: 050
     Dates: start: 202202
  3. VUMERITY [Suspect]
     Active Substance: DIROXIMEL FUMARATE
     Route: 050

REACTIONS (16)
  - Drug hypersensitivity [Recovered/Resolved]
  - Gastric volvulus [Unknown]
  - Gastric stenosis [Unknown]
  - Flatulence [Unknown]
  - Gait disturbance [Unknown]
  - Hypoaesthesia [Unknown]
  - Neuropathy peripheral [Unknown]
  - Hypovitaminosis [Unknown]
  - Paraesthesia [Recovered/Resolved]
  - Paraesthesia oral [Recovered/Resolved]
  - Lip pruritus [Recovered/Resolved]
  - Rhinorrhoea [Unknown]
  - Vomiting [Unknown]
  - Lymphocyte count decreased [Unknown]
  - Flushing [Unknown]
  - Pruritus [Recovered/Resolved]

NARRATIVE: CASE EVENT DATE: 20220101
